FAERS Safety Report 8149326 (Version 3)
Quarter: 2013Q2

REPORT INFORMATION
  Report Type: Spontaneous
  Country: US (occurrence: US)
  Receive Date: 20110922
  Receipt Date: 20130514
  Transmission Date: 20140414
  Serious: No
  Sender: FDA-Public Use
  Company Number: US-ASTRAZENECA-2010SE59905

PATIENT
  Age: 55 Year
  Sex: Male
  Weight: 77.1 kg

DRUGS (5)
  1. SEROQUEL XR [Suspect]
     Indication: BIPOLAR DISORDER
     Route: 048
     Dates: start: 2008, end: 20101210
  2. SEROQUEL XR [Suspect]
     Indication: SCHIZOPHRENIA
     Route: 048
     Dates: start: 2008, end: 20101210
  3. SEROQUEL XR [Suspect]
     Indication: BIPOLAR DISORDER
     Route: 048
  4. SEROQUEL XR [Suspect]
     Indication: SCHIZOPHRENIA
     Route: 048
  5. CELEXA [Concomitant]
     Indication: DEPRESSION
     Route: 048
     Dates: start: 2008

REACTIONS (14)
  - Insomnia [Unknown]
  - Anxiety [Unknown]
  - Depression [Unknown]
  - Decreased appetite [Unknown]
  - Aggression [Unknown]
  - Nervousness [Unknown]
  - Hallucination, visual [Unknown]
  - Alveolitis allergic [Unknown]
  - Multiple allergies [Unknown]
  - Seasonal allergy [Unknown]
  - Tremor [Unknown]
  - Restlessness [Unknown]
  - Hypersomnia [Unknown]
  - Intentional drug misuse [Unknown]
